FAERS Safety Report 19178168 (Version 1)
Quarter: 2021Q2

REPORT INFORMATION
  Report Type: Spontaneous
  Country: US (occurrence: US)
  Receive Date: 20210422
  Receipt Date: 20210422
  Transmission Date: 20210717
  Serious: Yes (Other)
  Sender: FDA-Public Use
  Company Number: None

PATIENT
  Sex: Female
  Weight: 79.65 kg

DRUGS (15)
  1. VITAMINS D3, B?12, C [Concomitant]
  2. PROPRANOLOL [Concomitant]
     Active Substance: PROPRANOLOL HYDROCHLORIDE
  3. DILTIAZEM. [Concomitant]
     Active Substance: DILTIAZEM
  4. MONTELUKAST [Concomitant]
     Active Substance: MONTELUKAST SODIUM
  5. SUMATRIPTAN. [Concomitant]
     Active Substance: SUMATRIPTAN
  6. MECLIZINE [Concomitant]
     Active Substance: MECLIZINE HYDROCHLORIDE
  7. JOINT SUPPORT [Concomitant]
  8. MONTELUKAST [Concomitant]
     Active Substance: MONTELUKAST SODIUM
  9. HYDROXYZINE [Concomitant]
     Active Substance: HYDROXYZINE HYDROCHLORIDE
  10. FISH OIL [Concomitant]
     Active Substance: FISH OIL
  11. ROPINIROLE HYDROCHLORIDE. [Suspect]
     Active Substance: ROPINIROLE HYDROCHLORIDE
     Indication: RESTLESS LEGS SYNDROME
     Dosage: ?          QUANTITY:1 TABLET(S);?
     Route: 048
     Dates: start: 20210420, end: 20210422
  12. OMEPRAZOLE. [Concomitant]
     Active Substance: OMEPRAZOLE
  13. PREMARIN [Concomitant]
     Active Substance: ESTROGENS, CONJUGATED
  14. ROPINIROLE. [Suspect]
     Active Substance: ROPINIROLE
  15. ADVIL [Concomitant]
     Active Substance: IBUPROFEN

REACTIONS (7)
  - Vomiting [None]
  - Feeling drunk [None]
  - Gait disturbance [None]
  - Vertigo [None]
  - Hallucination, auditory [None]
  - Hallucination, visual [None]
  - Therapy cessation [None]
